FAERS Safety Report 18698304 (Version 1)
Quarter: 2021Q1

REPORT INFORMATION
  Report Type: Spontaneous
  Country: RO (occurrence: RO)
  Receive Date: 20210105
  Receipt Date: 20210105
  Transmission Date: 20210419
  Serious: Yes (Other)
  Sender: FDA-Public Use
  Company Number: RO-LUPIN PHARMACEUTICALS INC.-2020-11308

PATIENT
  Age: 53 Year
  Sex: Male

DRUGS (8)
  1. TOCILIZUMAB. [Suspect]
     Active Substance: TOCILIZUMAB
     Indication: COVID-19
     Dosage: 640 MILLIGRAM, UNK
     Route: 065
     Dates: start: 2020
  2. LINEZOLID. [Concomitant]
     Active Substance: LINEZOLID
     Indication: ANAL ABSCESS
     Dosage: UNK
     Route: 065
  3. CASPOFUNGIN [Suspect]
     Active Substance: CASPOFUNGIN
     Indication: COVID-19
     Dosage: UNK
     Route: 065
     Dates: start: 2020
  4. PIPERACILLIN/TAZOBACTAM [Concomitant]
     Active Substance: PIPERACILLIN SODIUM\TAZOBACTAM SODIUM
     Indication: ANAL ABSCESS
     Dosage: UNK
     Route: 065
  5. HYDROXYCHLOROQUINE [Suspect]
     Active Substance: HYDROXYCHLOROQUINE
     Indication: COVID-19
     Dosage: UNK
     Route: 065
     Dates: start: 2020
  6. VANCOMYCIN [Suspect]
     Active Substance: VANCOMYCIN
     Indication: COVID-19
     Dosage: UNK
     Route: 065
     Dates: start: 2020
  7. MEROPENEM. [Suspect]
     Active Substance: MEROPENEM
     Indication: COVID-19
     Dosage: UNK
     Route: 065
     Dates: start: 2020
  8. COLIMICIN [Suspect]
     Active Substance: COLISTIN SULFATE
     Indication: COVID-19
     Dosage: UNK
     Route: 065
     Dates: start: 2020

REACTIONS (1)
  - Off label use [Unknown]

NARRATIVE: CASE EVENT DATE: 2020
